FAERS Safety Report 9034167 (Version 2)
Quarter: 2013Q3

REPORT INFORMATION
  Report Type: Spontaneous
  Country: US (occurrence: None)
  Receive Date: 20130114
  Receipt Date: 20130703
  Transmission Date: 20140515
  Serious: Yes (Hospitalization)
  Sender: FDA-Public Use
  Company Number: DSU-2013-00017

PATIENT
  Age: 68 Year
  Sex: Male

DRUGS (13)
  1. BENICAR [Suspect]
     Indication: PRODUCT USED FOR UNKNOWN INDICATION
     Dosage: 20 MG (20 MG, QD) , PER ORAL
     Route: 048
  2. ABIRATERONE ACETATE [Suspect]
     Indication: PROSTATE CANCER
     Route: 048
     Dates: start: 20110603
  3. SUTENT [Suspect]
     Indication: PROSTATE CANCER
     Route: 048
     Dates: start: 20120227, end: 20120422
  4. PREDNISONE [Suspect]
     Indication: PROSTATE CANCER
     Route: 048
  5. ASPIRIN [Suspect]
     Indication: PRODUCT USED FOR UNKNOWN INDICATION
     Route: 048
  6. LIPITOR [Suspect]
     Indication: PRODUCT USED FOR UNKNOWN INDICATION
     Route: 048
  7. GLYBURIDE [Suspect]
     Indication: PRODUCT USED FOR UNKNOWN INDICATION
     Dosage: 20 MG (10 MG, BID)
     Route: 048
  8. IMDUR [Suspect]
     Indication: PRODUCT USED FOR UNKNOWN INDICATION
     Route: 048
  9. METHADONE [Suspect]
     Indication: PRODUCT USED FOR UNKNOWN INDICATION
     Route: 048
     Dates: start: 20110307
  10. NITROGLYCERIN [Suspect]
     Indication: CHEST PAIN
     Route: 060
  11. NUCYNTA [Suspect]
     Indication: PRODUCT USED FOR UNKNOWN INDICATION
     Dosage: 450 MG (75 MG,Q4H)
     Route: 048
  12. BYSTOLIC [Suspect]
     Indication: PRODUCT USED FOR UNKNOWN INDICATION
     Route: 048
  13. SENOKOT-S [Suspect]
     Indication: PRODUCT USED FOR UNKNOWN INDICATION
     Dosage: 4 DOSAGE FORMS (2 DOSAGE FORMS, 2 IN 1 D)
     Route: 048

REACTIONS (5)
  - Dyspnoea [None]
  - Chest pain [None]
  - Asthenia [None]
  - Mental status changes [None]
  - Muscular weakness [None]
